FAERS Safety Report 9286962 (Version 5)
Quarter: 2014Q2

REPORT INFORMATION
  Report Type: Spontaneous
  Country: US (occurrence: US)
  Receive Date: 20130513
  Receipt Date: 20140520
  Transmission Date: 20141212
  Serious: Yes (Hospitalization)
  Sender: FDA-Public Use
  Company Number: US-B.I. PHARMACEUTICALS,INC./RIDGEFIELD-2013-BI-13164BP

PATIENT
  Sex: Female
  Weight: 79.38 kg

DRUGS (15)
  1. PRADAXA [Suspect]
     Indication: ATRIAL FIBRILLATION
     Dosage: 300 MG
     Route: 065
     Dates: start: 201201, end: 201206
  2. FOSAMAX D [Concomitant]
     Dosage: 10 MG
     Route: 065
  3. ADVAIR DISKUS [Concomitant]
     Dosage: 4 PUF
     Route: 065
  4. TRAVATAN Z [Concomitant]
     Dosage: 2.5 MG
     Route: 031
  5. SIMVASTATIN [Concomitant]
     Dosage: 40 MG
     Route: 065
  6. GABAPENTIN [Concomitant]
     Dosage: 900 MG
     Route: 065
  7. NEXIUM [Concomitant]
     Dosage: 40 MG
     Route: 065
  8. GLYBURIDE [Concomitant]
     Dosage: 5 MG
     Route: 065
  9. CELECORXIV [Concomitant]
     Dosage: 200 MG
     Route: 065
  10. LIS-HCTZ [Concomitant]
     Route: 065
  11. METOFORMIN [Concomitant]
     Dosage: 2000 MG
     Route: 065
  12. ROPINIROLE [Concomitant]
     Dosage: 1 MG
     Route: 065
  13. METANX [Concomitant]
     Route: 065
  14. FENOFIBRATE [Concomitant]
     Dosage: 67 MG
     Route: 065
  15. COREG [Concomitant]
     Dosage: 40 MG
     Route: 065

REACTIONS (2)
  - Gastrointestinal haemorrhage [Unknown]
  - Respiratory failure [Unknown]
